FAERS Safety Report 14480897 (Version 2)
Quarter: 2018Q1

REPORT INFORMATION
  Report Type: Spontaneous
  Country: US (occurrence: US)
  Receive Date: 20180202
  Receipt Date: 20180214
  Transmission Date: 20180509
  Serious: Yes (Other)
  Sender: FDA-Public Use
  Company Number: US-BAUSCH-BL-2018-002459

PATIENT
  Age: 77 Year
  Sex: Female

DRUGS (3)
  1. PREDNISONE. [Concomitant]
     Active Substance: PREDNISONE
     Indication: SJOGREN^S SYNDROME
  2. LISINOPRIL. [Concomitant]
     Active Substance: LISINOPRIL
     Indication: BLOOD PRESSURE MEASUREMENT
  3. LOTEMAX [Suspect]
     Active Substance: LOTEPREDNOL ETABONATE
     Indication: SJOGREN^S SYNDROME
     Dosage: SUSPENSION, FOR 1 WEEK TWICE A DAY IN BOTH EYE
     Route: 047
     Dates: start: 201712, end: 201712

REACTIONS (3)
  - Ulcerative keratitis [Recovering/Resolving]
  - Wrong technique in product usage process [Unknown]
  - Off label use [Recovered/Resolved]

NARRATIVE: CASE EVENT DATE: 201712
